FAERS Safety Report 25620813 (Version 1)
Quarter: 2025Q3

REPORT INFORMATION
  Report Type: Spontaneous
  Country: EU (occurrence: EU)
  Receive Date: 20250730
  Receipt Date: 20250730
  Transmission Date: 20251020
  Serious: Yes (Hospitalization)
  Sender: SOLARIS PHARMA CORPORATION
  Company Number: EU-SPC-000663

PATIENT
  Age: 49 Year
  Sex: Male

DRUGS (7)
  1. CLINDAMYCIN [Suspect]
     Active Substance: CLINDAMYCIN
     Indication: Hidradenitis
     Route: 048
  2. METRONIDAZOLE [Suspect]
     Active Substance: METRONIDAZOLE
     Indication: Hidradenitis
     Route: 048
  3. ADALIMUMAB [Suspect]
     Active Substance: ADALIMUMAB
     Indication: Hidradenitis
     Route: 058
  4. FERRIC CARBOXYMALTOSE [Concomitant]
     Active Substance: FERRIC CARBOXYMALTOSE
     Indication: Hypochromic anaemia
     Route: 042
  5. ERYTHROPOIETIN [Concomitant]
     Active Substance: ERYTHROPOIETIN
     Indication: Hypochromic anaemia
     Route: 058
  6. RIFAMPIN [Concomitant]
     Active Substance: RIFAMPIN
     Indication: Antibiotic therapy
     Route: 048
  7. CLINDAMYCIN [Suspect]
     Active Substance: CLINDAMYCIN
     Indication: Hidradenitis
     Route: 048

REACTIONS (3)
  - Product use in unapproved indication [Unknown]
  - Condition aggravated [Recovered/Resolved]
  - Hidradenitis [Recovered/Resolved]

NARRATIVE: CASE EVENT DATE: 20240101
